FAERS Safety Report 5945482-9 (Version None)
Quarter: 2008Q4

REPORT INFORMATION
  Report Type: 
  Country: None (occurrence: None)
  Receive Date: 20081107
  Receipt Date: 20081103
  Transmission Date: 20090506
  Serious: Yes (Hospitalization)
  Sender: FDA-Public Use
  Company Number: US-GILEAD-2008-0018779

PATIENT
  Sex: Female
  Weight: 83.536 kg

DRUGS (20)
  1. LETAIRIS [Suspect]
     Indication: PULMONARY ARTERIAL HYPERTENSION
     Route: 048
     Dates: start: 20071009
  2. METOLAZONE [Concomitant]
  3. PROZAC [Concomitant]
  4. PLAQUENIL [Concomitant]
  5. LASIX [Concomitant]
  6. VIAGRA [Concomitant]
  7. LYRICA [Concomitant]
  8. VICODIN [Concomitant]
  9. CAPTOPRIL [Concomitant]
  10. FOLIC ACID [Concomitant]
  11. ACTONEL [Concomitant]
  12. FLONASE [Concomitant]
  13. THEOPHYLLINE [Concomitant]
  14. PRILOSEC [Concomitant]
  15. ALLOPURINOL [Concomitant]
  16. ESTRADIOL [Concomitant]
  17. POTASSIUM CHLORIDE [Concomitant]
  18. HYOSCYAMINE [Concomitant]
  19. OXYGEN [Concomitant]
  20. DIGITEK [Concomitant]

REACTIONS (1)
  - LOSS OF CONSCIOUSNESS [None]
